FAERS Safety Report 5087263-7 (Version None)
Quarter: 2006Q3

REPORT INFORMATION
  Report Type: 
  Country: None (occurrence: None)
  Receive Date: 20060821
  Receipt Date: 20060808
  Transmission Date: 20061208
  Serious: Yes (Hospitalization)
  Sender: FDA-Public Use
  Company Number: PHBS2006JP07533

PATIENT
  Age: 64 Year
  Sex: Male

DRUGS (4)
  1. SANDIMMUM (CICLOSPORIN) CAPSULE [Suspect]
     Indication: RENAL TRANSPLANT
     Dosage: ORAL
     Route: 048
     Dates: start: 19920302
  2. NEORAL [Suspect]
     Indication: RENAL TRANSPLANT
     Dosage: ORAL
     Route: 048
     Dates: start: 19920302
  3. PREDNISOLONE [Suspect]
     Indication: RENAL TRANSPLANT
     Dosage: ORAL
     Route: 048
     Dates: start: 19920302
  4. BREDININ (MIZORIBINE) [Suspect]
     Indication: RENAL TRANSPLANT
     Dosage: ORAL
     Route: 048
     Dates: start: 19920302

REACTIONS (2)
  - LYMPHOPROLIFERATIVE DISORDER [None]
  - MULTIPLE MYELOMA [None]
